FAERS Safety Report 13897298 (Version 1)
Quarter: 2017Q3

REPORT INFORMATION
  Report Type: Report from Study
  Country: US (occurrence: US)
  Receive Date: 20170823
  Receipt Date: 20170823
  Transmission Date: 20171127
  Serious: Yes (Death)
  Sender: FDA-Public Use
  Company Number: US-JUBILANT CADISTA PHARMACEUTICALS-2017JUB00289

PATIENT
  Age: 57 Year
  Sex: Male
  Weight: 92.4 kg

DRUGS (5)
  1. SIROLIMUS. [Suspect]
     Active Substance: SIROLIMUS
  2. PREDNISONE. [Suspect]
     Active Substance: PREDNISONE
     Indication: GRAFT VERSUS HOST DISEASE
  3. INCB018424 [Suspect]
     Active Substance: RUXOLITINIB
     Indication: GRAFT VERSUS HOST DISEASE
     Dosage: UNK
     Route: 048
     Dates: start: 20170509
  4. GANCICLOVIR. [Suspect]
     Active Substance: GANCICLOVIR
  5. CYCLOSPPORINE [Suspect]
     Active Substance: CYCLOSPORINE

REACTIONS (4)
  - Candida infection [Fatal]
  - Bacterial infection [Fatal]
  - Acute graft versus host disease [Fatal]
  - Neutropenia [Fatal]

NARRATIVE: CASE EVENT DATE: 2017
